FAERS Safety Report 7177784-5 (Version None)
Quarter: 2010Q4

REPORT INFORMATION
  Report Type: 
  Country: None (occurrence: None)
  Receive Date: 20101220
  Receipt Date: 20100601
  Transmission Date: 20110411
  Serious: Yes (Other)
  Sender: FDA-Public Use
  Company Number: EG-GENZYME-CERZ-1001708

PATIENT
  Age: 2 Year

DRUGS (1)
  1. CEREZYME [Suspect]
     Indication: GAUCHER'S DISEASE
     Dosage: UNK
     Route: 042
     Dates: start: 20100201

REACTIONS (7)
  - APRAXIA [None]
  - COGNITIVE DISORDER [None]
  - ELECTROENCEPHALOGRAM ABNORMAL [None]
  - GAIT DISTURBANCE [None]
  - NYSTAGMUS [None]
  - SPEECH DISORDER [None]
  - SPLENOMEGALY [None]
